FAERS Safety Report 18825959 (Version 1)
Quarter: 2021Q1

REPORT INFORMATION
  Report Type: Spontaneous
  Country: US (occurrence: US)
  Receive Date: 20210201
  Receipt Date: 20210201
  Transmission Date: 20210419
  Serious: No
  Sender: FDA-Public Use
  Company Number: US-ABBVIE-20K-163-3395170-00

PATIENT
  Age: 32 Year
  Sex: Female

DRUGS (1)
  1. HUMIRA [Suspect]
     Active Substance: ADALIMUMAB
     Indication: PSORIATIC ARTHROPATHY
     Route: 058
     Dates: end: 202003

REACTIONS (15)
  - Weight decreased [Unknown]
  - Unevaluable event [Unknown]
  - Device issue [Unknown]
  - Psoriatic arthropathy [Unknown]
  - Feeling abnormal [Unknown]
  - Swelling [Unknown]
  - Discomfort [Unknown]
  - Depression [Unknown]
  - Dyspepsia [Unknown]
  - Pain [Unknown]
  - Device difficult to use [Unknown]
  - Incorrect dose administered [Unknown]
  - Joint instability [Unknown]
  - Anxiety [Unknown]
  - Headache [Unknown]

NARRATIVE: CASE EVENT DATE: 2020
